FAERS Safety Report 6719460-6 (Version None)
Quarter: 2010Q2

REPORT INFORMATION
  Report Type: 
  Country: None (occurrence: None)
  Receive Date: 20100511
  Receipt Date: 20100504
  Transmission Date: 20101027
  Serious: Yes (Death, Life-Threatening, Hospitalization)
  Sender: FDA-Public Use
  Company Number: AR-ROCHE-636148

PATIENT
  Sex: Female
  Weight: 87.5 kg

DRUGS (10)
  1. TOCILIZUMAB [Suspect]
     Indication: RHEUMATOID ARTHRITIS
     Dosage: TOTAL MONTHLY DOSE:680MG
     Route: 042
     Dates: start: 20060820
  2. TOCILIZUMAB [Suspect]
     Dosage: ROUTE AS INDOVENOUS, AND FORM AS INFUSION, TEMPORARILY INTERRUPTED.
     Route: 042
     Dates: start: 20081217, end: 20090603
  3. TOCILIZUMAB [Suspect]
     Dosage: PREVIOUSLY ENROLLED ON WA18063
     Route: 042
  4. PREDNISONE TAB [Concomitant]
     Route: 048
     Dates: start: 20080703
  5. PREDNISONE TAB [Concomitant]
     Route: 048
  6. DICLOFENAC [Concomitant]
     Route: 048
     Dates: start: 20071015
  7. DICLOFENAC [Concomitant]
     Route: 048
  8. OMEPRAZOLE [Concomitant]
     Route: 048
     Dates: start: 20050428
  9. LEFLUNOMIDE [Concomitant]
     Route: 048
     Dates: start: 20020101
  10. ATORVASTATIN CALCIUM [Concomitant]
     Dates: start: 20081021

REACTIONS (4)
  - DIARRHOEA [None]
  - ENTEROCUTANEOUS FISTULA [None]
  - INTESTINAL PERFORATION [None]
  - SEPSIS [None]
